FAERS Safety Report 8196508-6 (Version None)
Quarter: 2012Q1

REPORT INFORMATION
  Report Type: 
  Country: None (occurrence: None)
  Receive Date: 20120229
  Receipt Date: 20110819
  Transmission Date: 20120608
  Serious: No
  Sender: FDA-Public Use
  Company Number: US-2011-10538

PATIENT
  Age: 61 Year
  Sex: Male
  Weight: 124.7 kg

DRUGS (5)
  1. ZAROXOLYN [Concomitant]
  2. SAMSCA [Suspect]
     Indication: YELLOW NAIL SYNDROME
     Dosage: 30 MG MILLIGRAM(S), QOD, ORAL 60 MG MILLIGRAM (S), QOD, ORAL
     Route: 048
     Dates: start: 20110727
  3. SAMSCA [Suspect]
     Indication: BLOOD SODIUM DECREASED
     Dosage: 30 MG MILLIGRAM(S), QOD, ORAL 60 MG MILLIGRAM (S), QOD, ORAL
     Route: 048
     Dates: start: 20110727
  4. BUMEX [Concomitant]
  5. POTASSIUM CHLORIDE [Concomitant]

REACTIONS (2)
  - WEIGHT INCREASED [None]
  - LYMPHOEDEMA [None]
